FAERS Safety Report 23885734 (Version 1)
Quarter: 2024Q2

REPORT INFORMATION
  Report Type: Spontaneous
  Country: US (occurrence: US)
  Receive Date: 20240522
  Receipt Date: 20240522
  Transmission Date: 20240716
  Serious: No
  Sender: FDA-Public Use
  Company Number: US-009507513-2405USA002100

PATIENT
  Age: 8 Year
  Sex: Male

DRUGS (6)
  1. TEMODAR [Suspect]
     Active Substance: TEMOZOLOMIDE
     Indication: Pancreatic neuroendocrine tumour metastatic
     Dosage: 200 MILLIGRAM, GIVEN DAILY FOR THE FIRST 5 DAYS OF EACH CYCLE
     Route: 048
  2. TEMODAR [Suspect]
     Active Substance: TEMOZOLOMIDE
     Indication: Metastases to liver
  3. SANDOSTATIN [Concomitant]
     Active Substance: OCTREOTIDE ACETATE
     Indication: Pancreatic neuroendocrine tumour metastatic
     Dosage: 10 MILLIGRAM, MONTHLY
  4. SANDOSTATIN [Concomitant]
     Active Substance: OCTREOTIDE ACETATE
     Indication: Metastases to liver
  5. CAPECITABINE [Concomitant]
     Active Substance: CAPECITABINE
     Indication: Pancreatic neuroendocrine tumour metastatic
     Dosage: 750 MILLIGRAM, BID
  6. CAPECITABINE [Concomitant]
     Active Substance: CAPECITABINE
     Indication: Metastases to liver

REACTIONS (1)
  - Product use in unapproved indication [Unknown]
